FAERS Safety Report 24459079 (Version 3)
Quarter: 2025Q1

REPORT INFORMATION
  Report Type: Spontaneous
  Country: US (occurrence: US)
  Receive Date: 20241018
  Receipt Date: 20250122
  Transmission Date: 20250408
  Serious: Yes (Other)
  Sender: BIOVITRUM
  Company Number: US-BIOVITRUM-2024-US-013324

PATIENT
  Age: 62 Year
  Sex: Male

DRUGS (3)
  1. VONJO [Suspect]
     Active Substance: PACRITINIB
     Indication: Myelofibrosis
     Route: 048
     Dates: start: 20240930
  2. VONJO [Suspect]
     Active Substance: PACRITINIB
     Route: 048
     Dates: start: 20240930
  3. VONJO [Suspect]
     Active Substance: PACRITINIB
     Route: 048

REACTIONS (3)
  - Abnormal faeces [Recovered/Resolved]
  - Retinal haemorrhage [Unknown]
  - Visual impairment [Unknown]
